FAERS Safety Report 8401586 (Version 5)
Quarter: 2013Q1

REPORT INFORMATION
  Report Type: Spontaneous
  Country: US (occurrence: US)
  Receive Date: 20120210
  Receipt Date: 20130305
  Transmission Date: 20140127
  Serious: Yes (Hospitalization, Disabling, Other)
  Sender: FDA-Public Use
  Company Number: US-009507513-1202USA01415

PATIENT
  Sex: Female
  Weight: 74.83 kg

DRUGS (16)
  1. FOSAMAX [Suspect]
     Indication: OSTEOPENIA
     Dosage: 10 MG, UNK
     Route: 048
     Dates: start: 199809, end: 20011025
  2. FOSAMAX [Suspect]
     Indication: OSTEOPOROSIS
     Dosage: 70 MG, UNK
     Route: 048
     Dates: start: 20011025, end: 20080725
  3. FOSAMAX PLUS D [Suspect]
     Indication: OSTEOPENIA
     Dosage: 70 MG, UNK
     Route: 048
     Dates: start: 20070602, end: 20080725
  4. FOSAMAX PLUS D [Suspect]
     Indication: OSTEOPOROSIS
  5. ALENDRONATE SODIUM [Suspect]
     Indication: OSTEOPOROSIS
     Dosage: 70 MG, UNK
     Route: 048
     Dates: start: 20080725, end: 20100207
  6. VITAMINS (UNSPECIFIED) [Concomitant]
     Dosage: UNK
     Dates: start: 1960
  7. VITAMIN B12 [Concomitant]
     Dosage: UNK
     Dates: start: 1960
  8. TUMS [Concomitant]
     Dosage: UNK
  9. CORTICOSTEROIDS (UNSPECIFIED) [Concomitant]
     Dosage: UNK
     Dates: start: 1967
  10. COMPAZINE [Concomitant]
     Indication: NAUSEA
     Dosage: UNK
     Dates: start: 199809
  11. ASACOL [Concomitant]
     Indication: CROHN^S DISEASE
     Dosage: UNK
     Dates: start: 199805, end: 200506
  12. CHLORDIAZEPOXIDE [Concomitant]
     Indication: BLADDER SPASM
     Dosage: UNK
     Dates: start: 1960, end: 200810
  13. DIDRONEL [Suspect]
     Indication: OSTEOPENIA
     Dosage: UNK
     Dates: start: 19980521, end: 19980620
  14. PREDNISONE [Concomitant]
     Indication: CROHN^S DISEASE
  15. IMURAN (AZATHIOPRINE SODIUM) [Concomitant]
     Indication: CROHN^S DISEASE
  16. ALBUTEROL SULFATE [Concomitant]

REACTIONS (65)
  - Wrist fracture [Unknown]
  - Rib fracture [Unknown]
  - Mitral valve incompetence [Unknown]
  - Appendicectomy [Unknown]
  - Oophorectomy [Unknown]
  - Transfusion [Unknown]
  - Squamous cell carcinoma [Not Recovered/Not Resolved]
  - Pulmonary embolism [Unknown]
  - Anaemia [Unknown]
  - Pulmonary infarction [Unknown]
  - Disability [Unknown]
  - Intestinal resection [Unknown]
  - Aortic valve incompetence [Unknown]
  - Nephrolithiasis [Unknown]
  - Nausea [Unknown]
  - Femur fracture [Unknown]
  - Femur fracture [Unknown]
  - Intramedullary rod insertion [Unknown]
  - Cystitis [Not Recovered/Not Resolved]
  - Calculus ureteric [Unknown]
  - Stress fracture [Unknown]
  - Eye operation [Unknown]
  - Pyelonephritis [Unknown]
  - Blood cholesterol increased [Unknown]
  - Hypertension [Unknown]
  - Depression [Unknown]
  - Asthma [Unknown]
  - Urinary tract infection [Unknown]
  - Eye operation [Unknown]
  - Hormone level abnormal [Unknown]
  - Oesophageal dilatation [Unknown]
  - Thrombosis [Unknown]
  - Sinusitis [Not Recovered/Not Resolved]
  - Nephrolithiasis [Unknown]
  - Urine oxalate increased [Unknown]
  - Citric acid urine decreased [Unknown]
  - Vitamin D deficiency [Unknown]
  - Calculus ureteric [Unknown]
  - Clostridium difficile colitis [Unknown]
  - Chronic obstructive pulmonary disease [Unknown]
  - Urinary retention [Unknown]
  - Dyslipidaemia [Unknown]
  - Macular degeneration [Unknown]
  - Cataract [Unknown]
  - Extracorporeal shock wave therapy [Unknown]
  - Nephrolithiasis [Unknown]
  - Arthritis [Unknown]
  - Atrial fibrillation [Unknown]
  - Deep vein thrombosis [Unknown]
  - Anticoagulant therapy [Unknown]
  - Respiratory disorder [Unknown]
  - Acidosis [Unknown]
  - Factor V inhibition [Unknown]
  - Acoustic neuroma [Unknown]
  - Oedema [Unknown]
  - Arthralgia [Unknown]
  - Pain in extremity [Unknown]
  - Dyspepsia [Unknown]
  - Oedema peripheral [Unknown]
  - Abdominal pain [Unknown]
  - Nausea [Unknown]
  - Neck pain [Unknown]
  - Open reduction of fracture [Unknown]
  - Anal cancer stage 0 [Not Recovered/Not Resolved]
  - Papilloma viral infection [Unknown]
